FAERS Safety Report 16905492 (Version 1)
Quarter: 2019Q4

REPORT INFORMATION
  Report Type: Spontaneous
  Country: US (occurrence: US)
  Receive Date: 20191010
  Receipt Date: 20191010
  Transmission Date: 20200122
  Serious: Yes (Life-Threatening, Hospitalization)
  Sender: FDA-Public Use
  Company Number: US-AMNEAL PHARMACEUTICALS-2019-AMRX-02107

PATIENT
  Age: 65 Year
  Sex: Male

DRUGS (3)
  1. LISINOPRIL AND HYDROCHLOROTHIAZIDE [Suspect]
     Active Substance: HYDROCHLOROTHIAZIDE\LISINOPRIL
     Indication: HYPERTENSION
     Dosage: UNK, 20/25 MG
     Route: 048
  2. AMLODIPINE BESYLATE. [Suspect]
     Active Substance: AMLODIPINE BESYLATE
     Indication: HYPERTENSION
     Dosage: 10 MILLIGRAM (30 TABLETS)
     Route: 048
  3. CARVEDILOL PHOSPHATE EXTENDED-RELEASE [Suspect]
     Active Substance: CARVEDILOL PHOSPHATE
     Indication: HYPERTENSION
     Dosage: 12.5MG(60 TABLETS)
     Route: 048

REACTIONS (3)
  - Suicide attempt [Recovering/Resolving]
  - Hypotension [Recovered/Resolved]
  - Bundle branch block [Recovered/Resolved]
